FAERS Safety Report 5579154-X (Version None)
Quarter: 2008Q1

REPORT INFORMATION
  Report Type: 
  Country: None (occurrence: None)
  Receive Date: 20080102
  Receipt Date: 20071220
  Transmission Date: 20080703
  Serious: Yes (Death)
  Sender: FDA-Public Use
  Company Number: US-ROCHE-539037

PATIENT
  Age: 5 Year

DRUGS (3)
  1. INTERFERON ALFA-2A [Suspect]
     Indication: NEUROBLASTOMA
     Dosage: 3X10^6U/M2 OF SUBCUTANEOUS INTERFERON ALFA 2A DAILY ON 5 CONSECUTIVE DAYS PER WEEK FOR 4 WEEKS.
     Route: 058
  2. TRETINOIN [Suspect]
     Indication: NEUROBLASTOMA
     Dosage: 90MG/M2 OF ORAL ATRA DAILY GIVEN IN 3 DIVIDED DOSES WITH WHOLE MILK OR WITH MEALS FOR 3 CONSECUTIVE+
     Route: 048
  3. ACETAMINOPHEN [Concomitant]
     Dosage: GIVEN 30 MINUTES PRIOR TO RECEIVING SUBCUTANEOUS INTERFERON ALFA 2A

REACTIONS (1)
  - CARDIAC FAILURE CONGESTIVE [None]
